FAERS Safety Report 10150723 (Version 4)
Quarter: 2014Q2

REPORT INFORMATION
  Report Type: Spontaneous
  Country: ZA (occurrence: ZA)
  Receive Date: 20140502
  Receipt Date: 20140521
  Transmission Date: 20141212
  Serious: Yes (Other)
  Sender: FDA-Public Use
  Company Number: ZA-PFIZER INC-2014120023

PATIENT
  Age: 58 Year
  Sex: Female

DRUGS (13)
  1. LYRICA [Suspect]
     Indication: PAIN
     Dosage: 75 MG, DAILY
     Route: 048
     Dates: start: 20140205
  2. LYRICA [Suspect]
     Dosage: 4 DF, DAILY
  3. NEURONTIN [Suspect]
     Indication: PAIN
     Dosage: 100 MG, DAILY
     Dates: start: 20140307
  4. NEURONTIN [Suspect]
     Dosage: 300 MG, 2X/DAY
     Dates: end: 20140429
  5. MORPHINE [Concomitant]
     Indication: PAIN
     Dosage: UNK
  6. PANAMOR [Concomitant]
     Indication: PAIN
     Dosage: UNK
  7. TENSTON [Concomitant]
     Indication: PAIN
     Dosage: UNK
  8. PANADO [Concomitant]
     Indication: PAIN
     Dosage: UNK
  9. DURAGESIC [Concomitant]
     Indication: PAIN
     Dosage: UNK
  10. ALZAM [Concomitant]
  11. OMEPRAZOLE [Concomitant]
  12. CYMGEN [Concomitant]
  13. NEOPHEDAN [Concomitant]

REACTIONS (4)
  - Infective myositis [Unknown]
  - Myalgia [Unknown]
  - Hypoaesthesia [Unknown]
  - Pain [Unknown]
